FAERS Safety Report 7018141-1 (Version None)
Quarter: 2010Q3

REPORT INFORMATION
  Report Type: 
  Country: None (occurrence: None)
  Receive Date: 20100927
  Receipt Date: 20100927
  Transmission Date: 20110219
  Serious: Yes (Hospitalization)
  Sender: FDA-Public Use
  Company Number: None

PATIENT
  Age: 28 Year
  Sex: Female
  Weight: 54.4316 kg

DRUGS (1)
  1. TORADOL [Suspect]
     Indication: HEADACHE
     Dosage: 1 PILL ONCE PO
     Route: 048
     Dates: start: 20100504, end: 20100505

REACTIONS (7)
  - BALANCE DISORDER [None]
  - DIZZINESS [None]
  - DYSARTHRIA [None]
  - DYSPHEMIA [None]
  - HYPOAESTHESIA FACIAL [None]
  - PALLOR [None]
  - VISUAL IMPAIRMENT [None]
